FAERS Safety Report 21083271 (Version 8)
Quarter: 2023Q1

REPORT INFORMATION
  Report Type: Report from Study
  Country: CN (occurrence: None)
  Receive Date: 20220714
  Receipt Date: 20230215
  Transmission Date: 20230418
  Serious: Yes (Hospitalization)
  Sender: FDA-Public Use
  Company Number: CN-ROCHE-3133493

PATIENT
  Sex: Female
  Weight: 69 kg

DRUGS (6)
  1. PLACEBO [Suspect]
     Active Substance: UNSPECIFIED INGREDIENT
     Indication: Small cell lung cancer
     Dosage: ON 18/MAR/2022, RECEIVED MOST RECENT DOSE OF BLINDED TIRAGOLUMAB BEFORE EVENT ONSET.?ON 08/APR/2022,
     Route: 042
     Dates: start: 20220318, end: 20220705
  2. PLACEBO [Suspect]
     Active Substance: UNSPECIFIED INGREDIENT
     Route: 042
     Dates: start: 20220818
  3. ATEZOLIZUMAB [Suspect]
     Active Substance: ATEZOLIZUMAB
     Indication: Small cell lung cancer
     Dosage: ON 18/MAR/2022, RECEIVED MOST RECENT DOSE OF ATEZOLIZUMAB BEFORE EVENT ONSET?ON 08/APR/2022, RECEIVE
     Route: 041
     Dates: start: 20220318, end: 20220705
  4. ATEZOLIZUMAB [Suspect]
     Active Substance: ATEZOLIZUMAB
     Route: 041
     Dates: start: 20220818
  5. LEVOTHYROXINE SODIUM [Concomitant]
     Active Substance: LEVOTHYROXINE SODIUM
     Dates: start: 20160315
  6. CODEINE PHOSPHATE [Concomitant]
     Active Substance: CODEINE PHOSPHATE
     Dates: start: 20220705, end: 20220724

REACTIONS (1)
  - Radiation pneumonitis [Recovering/Resolving]

NARRATIVE: CASE EVENT DATE: 20220704
